FAERS Safety Report 8134657-9 (Version None)
Quarter: 2012Q1

REPORT INFORMATION
  Report Type: 
  Country: None (occurrence: None)
  Receive Date: 20120214
  Receipt Date: 20120208
  Transmission Date: 20120608
  Serious: Yes (Other)
  Sender: FDA-Public Use
  Company Number: SE-PFIZER INC-2012035078

PATIENT

DRUGS (1)
  1. TERRA-CORTRIL POLYMYXIN B [Suspect]

REACTIONS (1)
  - SUICIDE ATTEMPT [None]
